FAERS Safety Report 11286744 (Version 1)
Quarter: 2015Q3

REPORT INFORMATION
  Report Type: Spontaneous
  Country: US (occurrence: None)
  Receive Date: 20150720
  Receipt Date: 20150720
  Transmission Date: 20151125
  Serious: No
  Sender: FDA-Public Use
  Company Number: None

PATIENT
  Age: 65 Year
  Sex: Female
  Weight: 72.58 kg

DRUGS (8)
  1. FLONASE [Suspect]
     Active Substance: FLUTICASONE PROPIONATE
     Indication: SINUS CONGESTION
     Dosage: 2 SPRAYS IN EACH NOSTRIL ONCE DAILY INHALATION
     Route: 055
     Dates: start: 20150326, end: 20150719
  2. ATORVASTATIN [Concomitant]
     Active Substance: ATORVASTATIN
  3. METOPROLOL ER [Concomitant]
     Active Substance: METOPROLOL SUCCINATE
  4. AMLODIPINE BESYLATE. [Concomitant]
     Active Substance: AMLODIPINE BESYLATE
  5. DIOVAN [Concomitant]
     Active Substance: VALSARTAN
  6. WARFARIN [Concomitant]
     Active Substance: WARFARIN
  7. BABY ASPIRIN [Concomitant]
     Active Substance: ASPIRIN
  8. FISH OIL [Concomitant]
     Active Substance: FISH OIL

REACTIONS (2)
  - Joint swelling [None]
  - Peripheral swelling [None]

NARRATIVE: CASE EVENT DATE: 20150719
